FAERS Safety Report 6518230-1 (Version None)
Quarter: 2009Q4

REPORT INFORMATION
  Report Type: 
  Country: None (occurrence: None)
  Receive Date: 20091218
  Receipt Date: 20091204
  Transmission Date: 20100525
  Serious: Yes (Congenital Anomaly)
  Sender: FDA-Public Use
  Company Number: 2009AL007667

PATIENT

DRUGS (3)
  1. VENLAFAXINE HCL [Suspect]
     Indication: DRUG EXPOSURE DURING PREGNANCY
     Dosage: 150 MG;TRPL
     Route: 064
     Dates: start: 20080101
  2. SERETIDE [Concomitant]
  3. ALBUTEROL [Concomitant]

REACTIONS (2)
  - ENCEPHALOCELE [None]
  - MATERNAL DRUGS AFFECTING FOETUS [None]
